FAERS Safety Report 18235507 (Version 1)
Quarter: 2020Q3

REPORT INFORMATION
  Report Type: Spontaneous
  Country: IN (occurrence: IN)
  Receive Date: 20200905
  Receipt Date: 20200905
  Transmission Date: 20201103
  Serious: Yes (Hospitalization, Other)
  Sender: FDA-Public Use
  Company Number: IN-INSUD PHARMA-2008IN00193

PATIENT

DRUGS (1)
  1. NUVESSA [Suspect]
     Active Substance: METRONIDAZOLE
     Indication: HEPATIC AMOEBIASIS
     Dosage: UNK
     Route: 065

REACTIONS (5)
  - Disorientation [Recovered/Resolved]
  - Encephalopathy [Recovered/Resolved]
  - Seizure [Recovered/Resolved]
  - Mental status changes [Recovered/Resolved]
  - Somnolence [Recovered/Resolved]
